FAERS Safety Report 11393365 (Version 1)
Quarter: 2015Q3

REPORT INFORMATION
  Report Type: Spontaneous
  Country: RU (occurrence: RU)
  Receive Date: 20150818
  Receipt Date: 20150818
  Transmission Date: 20151125
  Serious: Yes (Other)
  Sender: FDA-Public Use
  Company Number: RU-BRISTOL-MYERS SQUIBB COMPANY-BMS-2015-052946

PATIENT
  Sex: Male

DRUGS (1)
  1. ORENCIA [Suspect]
     Active Substance: ABATACEPT
     Indication: PRODUCT USED FOR UNKNOWN INDICATION
     Dosage: 2 UNK, UNK
     Route: 065
     Dates: start: 201506

REACTIONS (1)
  - Tuberculin test positive [Unknown]
